FAERS Safety Report 10608579 (Version 4)
Quarter: 2015Q1

REPORT INFORMATION
  Report Type: Spontaneous
  Country: US (occurrence: US)
  Receive Date: 20141125
  Receipt Date: 20150123
  Transmission Date: 20150720
  Serious: Yes (Death)
  Sender: FDA-Public Use
  Company Number: US-009507513-1411USA008372

PATIENT
  Age: 17 Year
  Sex: Female

DRUGS (9)
  1. OXYCONTIN [Concomitant]
     Active Substance: OXYCODONE HYDROCHLORIDE
  2. SYNTHROID [Concomitant]
     Active Substance: LEVOTHYROXINE SODIUM
  3. KEYTRUDA [Suspect]
     Active Substance: PEMBROLIZUMAB
     Dosage: 2 MG/KG, Q3W INTRAVENOUS INFUSION OVER 30 MINUTES
     Route: 042
     Dates: start: 20141002, end: 20141002
  4. LEXAPRO [Concomitant]
     Active Substance: ESCITALOPRAM OXALATE
  5. DECADRON [Concomitant]
     Active Substance: DEXAMETHASONE
  6. ROXANOL [Concomitant]
     Active Substance: MORPHINE SULFATE
  7. MYCOSTATIN [Concomitant]
     Active Substance: NYSTATIN
  8. LORAZEPAM. [Concomitant]
     Active Substance: LORAZEPAM
  9. KEYTRUDA [Suspect]
     Active Substance: PEMBROLIZUMAB
     Indication: MALIGNANT MELANOMA
     Dosage: 2 MG/KG, Q3W INTRAVENOUS INFUSION OVER 30 MINUTES
     Route: 042
     Dates: start: 20140911, end: 20140911

REACTIONS (1)
  - Malignant neoplasm progression [Fatal]

NARRATIVE: CASE EVENT DATE: 20141016
